FAERS Safety Report 15598156 (Version 1)
Quarter: 2018Q4

REPORT INFORMATION
  Report Type: Spontaneous
  Country: US (occurrence: US)
  Receive Date: 20181108
  Receipt Date: 20181108
  Transmission Date: 20190205
  Serious: Yes (Death)
  Sender: FDA-Public Use
  Company Number: US-LPDUSPRD-20182065

PATIENT
  Age: 63 Year
  Sex: Female
  Weight: 102 kg

DRUGS (7)
  1. CITALOPRAM [Suspect]
     Active Substance: CITALOPRAM HYDROBROMIDE
     Dosage: UNKNOWN
     Route: 065
  2. LORAZEPAM. [Suspect]
     Active Substance: LORAZEPAM
     Dosage: UNKNOWN
     Route: 065
  3. BENZOYLECGONINE [Suspect]
     Active Substance: BENZOYLECGONINE
     Dosage: UNKNOWN
     Route: 065
  4. HYDROXYZINE HCL INJECTION, USP (4201-25) [Suspect]
     Active Substance: HYDROXYZINE HYDROCHLORIDE
     Dosage: UNKNOWN
     Route: 065
  5. COCAETHYLENE [Suspect]
     Active Substance: COCAETHYLENE
     Dosage: UNKNOWN
     Route: 065
  6. OXYCODONE [Suspect]
     Active Substance: OXYCODONE
     Dosage: UNKNOWN
     Route: 065
  7. COCAINE [Suspect]
     Active Substance: COCAINE
     Dosage: UNKNOWN
     Route: 065

REACTIONS (1)
  - Accidental overdose [Fatal]
